FAERS Safety Report 10028583 (Version 1)
Quarter: 2014Q1

REPORT INFORMATION
  Report Type: Spontaneous
  Country: DE (occurrence: DE)
  Receive Date: 20140321
  Receipt Date: 20140321
  Transmission Date: 20141002
  Serious: Yes (Hospitalization)
  Sender: FDA-Public Use
  Company Number: DE-TEVA-469178GER

PATIENT
  Age: 70 Year
  Sex: Male

DRUGS (7)
  1. GLIBENCLAMIDE [Suspect]
     Indication: TYPE 2 DIABETES MELLITUS
     Dosage: 7 MILLIGRAM DAILY;
     Route: 065
     Dates: start: 201110, end: 20120111
  2. PROPRANOLOL [Interacting]
     Route: 065
  3. TORASEMIDE [Interacting]
     Route: 065
  4. AMLODIPINE [Interacting]
     Route: 065
  5. NEXAVAR [Interacting]
     Dosage: 800 MILLIGRAM DAILY;
     Route: 065
     Dates: start: 20120110
  6. RAMIPRIL [Concomitant]
     Route: 065
  7. DIPYRONE [Concomitant]
     Route: 065

REACTIONS (2)
  - Hypoglycaemia [Recovered/Resolved]
  - Drug interaction [Recovered/Resolved]
